FAERS Safety Report 10365894 (Version 2)
Quarter: 2014Q3

REPORT INFORMATION
  Report Type: Spontaneous
  Country: JP (occurrence: JP)
  Receive Date: 20140806
  Receipt Date: 20140814
  Transmission Date: 20150326
  Serious: Yes (Hospitalization)
  Sender: FDA-Public Use
  Company Number: JP-ASTRAZENECA-2014SE55815

PATIENT
  Age: 79 Year
  Sex: Female
  Weight: 64 kg

DRUGS (11)
  1. BAYASPIRIN [Concomitant]
     Active Substance: ASPIRIN
     Dosage: DOSE UNKNOWN
     Route: 065
  2. PREDNISOLONE. [Concomitant]
     Active Substance: PREDNISOLONE
     Indication: HENOCH-SCHONLEIN PURPURA
     Dosage: DOSE UNKNOWN
     Route: 048
     Dates: start: 20140410, end: 20140425
  3. TANATRIL [Concomitant]
     Active Substance: IMIDAPRIL
     Dosage: DOSE UNKNOWN
     Route: 048
  4. CRESTOR [Concomitant]
     Active Substance: ROSUVASTATIN CALCIUM
     Dosage: DOSE UNKNOWN
     Route: 048
  5. NU-LOTAN [Concomitant]
     Active Substance: LOSARTAN POTASSIUM
     Dosage: DOSE UNKNOWN
     Route: 048
  6. ATELEC [Concomitant]
     Active Substance: CILNIDIPINE
     Dosage: DOSE UNKNOWN
     Route: 048
  7. CAPTORIL [Concomitant]
     Active Substance: CAPTOPRIL
     Dosage: DOSE UNKNOWN
     Route: 048
  8. GASTROM [Concomitant]
     Active Substance: ECABET
     Dosage: DOSE UNKNOWN
     Route: 048
  9. NEXIUM [Suspect]
     Active Substance: ESOMEPRAZOLE MAGNESIUM
     Indication: EROSIVE DUODENITIS
     Route: 048
     Dates: start: 20140412, end: 20140520
  10. ALESION [Concomitant]
     Active Substance: EPINASTINE HYDROCHLORIDE
     Dosage: DOSE UNKNOWN
     Route: 048
  11. TRANSAMIN [Concomitant]
     Active Substance: TRANEXAMIC ACID
     Dosage: DOSE UNKNOWN
     Route: 048

REACTIONS (2)
  - Platelet count decreased [Recovered/Resolved]
  - Henoch-Schonlein purpura [Unknown]

NARRATIVE: CASE EVENT DATE: 201404
